FAERS Safety Report 7908049-9 (Version None)
Quarter: 2011Q4

REPORT INFORMATION
  Report Type: 
  Country: None (occurrence: None)
  Receive Date: 20111110
  Receipt Date: 20111108
  Transmission Date: 20120403
  Serious: Yes (Other)
  Sender: FDA-Public Use
  Company Number: US-BRISTOL-MYERS SQUIBB COMPANY-16189524

PATIENT
  Age: 52 Year
  Sex: Female
  Weight: 78 kg

DRUGS (4)
  1. METFORMIN HCL [Suspect]
     Indication: TYPE 2 DIABETES MELLITUS
  2. DILANTIN [Suspect]
     Indication: CONVULSION
     Dosage: 1DF:400 MG FOUR DAYS IN A WEEK AND 300 MG THREE DAYS IN A WEEK
  3. SYNTHROID [Concomitant]
     Indication: THYROID DISORDER
     Dosage: 1DF:150MG TO 175MG TAB.
     Route: 048
  4. TOPAMAX [Suspect]
     Indication: CONVULSION

REACTIONS (6)
  - TREMOR [None]
  - OSTEOPOROSIS [None]
  - BONE DENSITY DECREASED [None]
  - ARTHRITIS [None]
  - DRUG LEVEL DECREASED [None]
  - COORDINATION ABNORMAL [None]
